FAERS Safety Report 15009869 (Version 1)
Quarter: 2018Q2

REPORT INFORMATION
  Report Type: Spontaneous
  Country: IT (occurrence: IT)
  Receive Date: 20180614
  Receipt Date: 20180614
  Transmission Date: 20180711
  Serious: Yes (Life-Threatening, Other)
  Sender: FDA-Public Use
  Company Number: IT-WEST-WARD PHARMACEUTICALS CORP.-IT-H14001-18-04853

PATIENT
  Age: 64 Year
  Sex: Female
  Weight: 62 kg

DRUGS (8)
  1. NIRAPARIB [Suspect]
     Active Substance: NIRAPARIB
     Indication: OVARIAN CANCER
     Route: 048
     Dates: start: 20170817, end: 20180427
  2. CISPLATIN. [Suspect]
     Active Substance: CISPLATIN
     Indication: PRODUCT USED FOR UNKNOWN INDICATION
     Dosage: DOSAGE FORM: UNSPECIFIED ()
     Route: 065
  3. DOXORUBICIN [Suspect]
     Active Substance: DOXORUBICIN
     Indication: PRODUCT USED FOR UNKNOWN INDICATION
     Dosage: DOSAGE FORM: UNSPECIFIED ()
     Route: 065
  4. OMEPRAZOLE. [Concomitant]
     Active Substance: OMEPRAZOLE
     Indication: PRODUCT USED FOR UNKNOWN INDICATION
     Dosage: DOSAGE FORM: UNSPECIFIED ()
     Route: 065
  5. CARBOPLATIN. [Suspect]
     Active Substance: CARBOPLATIN
     Indication: PRODUCT USED FOR UNKNOWN INDICATION
     Dosage: DOSAGE FORM: UNSPECIFIED ()
     Route: 065
  6. TRABECTEDIN [Suspect]
     Active Substance: TRABECTEDIN
     Indication: PRODUCT USED FOR UNKNOWN INDICATION
     Dosage: DOSAGE FORM: LYOPHILIZED POWDER ()
     Route: 065
  7. CISPLATIN W/PACLITAXEL [Suspect]
     Active Substance: CISPLATIN\PACLITAXEL
     Indication: PRODUCT USED FOR UNKNOWN INDICATION
     Dosage: DOSAGE FORM: UNSPECIFIED ()
     Route: 065
  8. GEMCITABINE [Suspect]
     Active Substance: GEMCITABINE\GEMCITABINE HYDROCHLORIDE

REACTIONS (2)
  - Acute myeloid leukaemia [Not Recovered/Not Resolved]
  - Lymphangioleiomyomatosis [Unknown]

NARRATIVE: CASE EVENT DATE: 20180427
